FAERS Safety Report 8477211-1 (Version None)
Quarter: 2012Q2

REPORT INFORMATION
  Report Type: 
  Country: None (occurrence: None)
  Receive Date: 20120625
  Receipt Date: 20120625
  Transmission Date: 20120825
  Serious: Yes (Other)
  Sender: FDA-Public Use
  Company Number: None

PATIENT
  Age: 30 Year
  Sex: Female
  Weight: 49.8957 kg

DRUGS (1)
  1. ATENOLOL [Suspect]
     Indication: ATRIAL FLUTTER
     Dosage: 12.5 MG 1 A DAY PO
     Route: 048
     Dates: start: 20111129, end: 20120624

REACTIONS (1)
  - TINNITUS [None]
